FAERS Safety Report 7015128-X (Version None)
Quarter: 2010Q3

REPORT INFORMATION
  Report Type: 
  Country: None (occurrence: None)
  Receive Date: 20100927
  Receipt Date: 20100420
  Transmission Date: 20110219
  Serious: No
  Sender: FDA-Public Use
  Company Number: US-ASTRAZENECA-2007UW26932

PATIENT
  Age: 66 Year
  Sex: Female
  Weight: 56.2 kg

DRUGS (2)
  1. ARIMIDEX [Suspect]
     Indication: BREAST CANCER FEMALE
     Route: 048
     Dates: start: 20071119
  2. XANAX [Concomitant]

REACTIONS (7)
  - DEPRESSION [None]
  - FATIGUE [None]
  - INSOMNIA [None]
  - OSTEOPOROSIS [None]
  - PAIN [None]
  - TEARFULNESS [None]
  - TOOTH DISORDER [None]
